FAERS Safety Report 5851839-7 (Version None)
Quarter: 2008Q3

REPORT INFORMATION
  Report Type: 
  Country: None (occurrence: None)
  Receive Date: 20080819
  Receipt Date: 20080804
  Transmission Date: 20090109
  Serious: Yes (Hospitalization)
  Sender: FDA-Public Use
  Company Number: 2008S1000230

PATIENT
  Age: 49 Year
  Sex: Male

DRUGS (2)
  1. ACITRETIN [Suspect]
     Indication: NEOPLASM PROPHYLAXIS
     Dosage: 20 MG; QOD; PO, 30 MG; QOD; PO
     Route: 048
     Dates: start: 20061115
  2. ACITRETIN [Suspect]
     Indication: NEOPLASM PROPHYLAXIS
     Dosage: 20 MG; QOD; PO, 30 MG; QOD; PO
     Route: 048
     Dates: start: 20061115

REACTIONS (3)
  - EXTRASKELETAL OSSIFICATION [None]
  - OFF LABEL USE [None]
  - PAIN [None]
